FAERS Safety Report 7559779-2 (Version None)
Quarter: 2011Q2

REPORT INFORMATION
  Report Type: 
  Country: None (occurrence: None)
  Receive Date: 20110617
  Receipt Date: 20110617
  Transmission Date: 20111010
  Serious: Yes (Other)
  Sender: FDA-Public Use
  Company Number: None

PATIENT
  Age: 32 Year
  Sex: Male
  Weight: 50.8029 kg

DRUGS (1)
  1. SIMVASTATIN [Suspect]
     Indication: HYPERLIPIDAEMIA
     Dosage: 10MG ONCE DAILY PO
     Route: 048
     Dates: start: 20110609, end: 20110614

REACTIONS (3)
  - COUGH [None]
  - DYSPNOEA [None]
  - UPPER-AIRWAY COUGH SYNDROME [None]
